FAERS Safety Report 4807558-9 (Version None)
Quarter: 2005Q4

REPORT INFORMATION
  Report Type: 
  Country: None (occurrence: None)
  Receive Date: 20051024
  Receipt Date: 20051013
  Transmission Date: 20060501
  Serious: Yes (Other)
  Sender: FDA-Public Use
  Company Number: US-ROCHE-421209

PATIENT
  Age: 50 Year
  Sex: Male
  Weight: 95.3 kg

DRUGS (5)
  1. COPEGUS [Suspect]
     Indication: HEPATITIS C
     Dosage: DOSE: 200MG.
     Route: 048
     Dates: start: 20050810, end: 20050910
  2. PEG-INTRON [Suspect]
     Indication: HEPATITIS C
     Dosage: FORMULATION: REDIPEN.
     Route: 058
     Dates: start: 20050810, end: 20050910
  3. TRIAMTERENE AND HYDROCHLOROTHIAZIDE [Concomitant]
     Dosage: 37.5/25MG.
     Dates: start: 20030615
  4. AMBIEN [Concomitant]
     Indication: INSOMNIA
     Dates: start: 20050711, end: 20050911
  5. VERAPAMIL [Concomitant]
     Dates: start: 20030615

REACTIONS (3)
  - HALLUCINATION [None]
  - ROAD TRAFFIC ACCIDENT [None]
  - SUICIDAL IDEATION [None]
